FAERS Safety Report 25282730 (Version 1)
Quarter: 2025Q2

REPORT INFORMATION
  Report Type: Spontaneous
  Country: US (occurrence: US)
  Receive Date: 20250508
  Receipt Date: 20250508
  Transmission Date: 20250716
  Serious: Yes (Other)
  Sender: AUROBINDO
  Company Number: US-AUROBINDO-AUR-APL-2025-023117

PATIENT
  Age: 70 Year
  Sex: Male

DRUGS (5)
  1. PREDNISONE [Suspect]
     Active Substance: PREDNISONE
     Indication: Clostridium difficile infection
     Dosage: 20 MILLIGRAM, TWO TIMES A DAY
     Route: 065
  2. PREDNISONE [Suspect]
     Active Substance: PREDNISONE
     Indication: Colitis microscopic
  3. VANCOMYCIN [Suspect]
     Active Substance: VANCOMYCIN
     Indication: Clostridium difficile infection
     Route: 048
  4. BUDESONIDE [Suspect]
     Active Substance: BUDESONIDE
     Indication: Clostridium difficile infection
     Dosage: 9 MILLIGRAM, FOUR TIMES/DAY
     Route: 065
  5. BUDESONIDE [Suspect]
     Active Substance: BUDESONIDE
     Indication: Colitis microscopic

REACTIONS (1)
  - Drug ineffective [Unknown]
